FAERS Safety Report 23809578 (Version 3)
Quarter: 2024Q3

REPORT INFORMATION
  Report Type: Spontaneous
  Country: DE (occurrence: DE)
  Receive Date: 20240502
  Receipt Date: 20240911
  Transmission Date: 20241016
  Serious: Yes (Other)
  Sender: ORGANON
  Company Number: None

PATIENT
  Age: 27 Year
  Sex: Female

DRUGS (7)
  1. FOLLITROPIN BETA [Suspect]
     Active Substance: FOLLITROPIN BETA
     Indication: In vitro fertilisation
     Dosage: 100 INTERNATIONAL UNIT, 1 TIME DAILY
     Dates: start: 20240328, end: 20240403
  2. FOLLITROPIN BETA [Suspect]
     Active Substance: FOLLITROPIN BETA
     Dosage: 75 INTERNATIONAL UNIT, 1 TIME DAILY
     Route: 065
     Dates: start: 20240404, end: 20240405
  3. FOLLITROPIN BETA [Suspect]
     Active Substance: FOLLITROPIN BETA
     Dosage: 50 INTERNATIONAL UNIT, 1 TIME DAILY
     Route: 065
     Dates: start: 20240406
  4. PROGESTERONE [Suspect]
     Active Substance: PROGESTERONE
     Indication: Hormone therapy
     Dosage: 600 MG, 1 TIME DAILY
     Route: 067
  5. TRIPTORELIN [Suspect]
     Active Substance: TRIPTORELIN
     Indication: In vitro fertilisation
     Dosage: 0.1 MG, 1 TIME DAILY
     Route: 065
     Dates: start: 20240328, end: 20240406
  6. MENOTROPINS [Suspect]
     Active Substance: MENOTROPINS
     Indication: Assisted reproductive technology
     Dosage: 75-100 IU
     Route: 065
  7. CHORIONIC GONADOTROPHIN [Suspect]
     Active Substance: CHORIOGONADOTROPIN ALFA
     Indication: Assisted reproductive technology
     Dosage: 5000 INTERNATIONAL UNIT, ONCE/SINGLE (POWDER AND SOLVENT FOR SOLUTION FOR INJECTION)
     Route: 065
     Dates: start: 20240406

REACTIONS (3)
  - Ascites [Recovered/Resolved]
  - Ovarian hyperstimulation syndrome [Recovered/Resolved]
  - Overdose [Unknown]

NARRATIVE: CASE EVENT DATE: 20240409
